FAERS Safety Report 16830033 (Version 1)
Quarter: 2019Q3

REPORT INFORMATION
  Report Type: Spontaneous
  Country: US (occurrence: US)
  Receive Date: 20190919
  Receipt Date: 20190919
  Transmission Date: 20191005
  Serious: Yes (Other)
  Sender: FDA-Public Use
  Company Number: US-BRISTOL-MYERS SQUIBB COMPANY-BMS-2019-090026

PATIENT
  Sex: Female

DRUGS (1)
  1. NIVOLUMAB [Suspect]
     Active Substance: NIVOLUMAB
     Indication: CERVIX CARCINOMA
     Dosage: 3 MILLIGRAM/SQ. METER, Q2WK
     Route: 065

REACTIONS (4)
  - Tumour pseudoprogression [Unknown]
  - Intentional product use issue [Unknown]
  - Pleural effusion [Unknown]
  - Diarrhoea [Unknown]
